FAERS Safety Report 21565202 (Version 1)
Quarter: 2022Q4

REPORT INFORMATION
  Report Type: Spontaneous
  Country: US (occurrence: None)
  Receive Date: 20221107
  Receipt Date: 20221107
  Transmission Date: 20230113
  Serious: No
  Sender: FDA-Public Use
  Company Number: None

PATIENT
  Age: 79 Year
  Sex: Female

DRUGS (1)
  1. LENALIDOMIDE [Suspect]
     Active Substance: LENALIDOMIDE
     Indication: Myelodysplastic syndrome
     Dosage: FREQUENCY : DAILY;?
     Route: 048
     Dates: start: 20130422

REACTIONS (5)
  - Headache [None]
  - Muscle spasms [None]
  - Myalgia [None]
  - Gait disturbance [None]
  - Product substitution issue [None]

NARRATIVE: CASE EVENT DATE: 20221107
